FAERS Safety Report 8233438-5 (Version None)
Quarter: 2012Q1

REPORT INFORMATION
  Report Type: 
  Country: None (occurrence: None)
  Receive Date: 20120326
  Receipt Date: 20120314
  Transmission Date: 20120608
  Serious: Yes (Hospitalization)
  Sender: FDA-Public Use
  Company Number: DE-ELI_LILLY_AND_COMPANY-DE201203003916

PATIENT
  Sex: Female

DRUGS (4)
  1. MARCUMAR [Concomitant]
  2. ANTIHYPERTENSIVES [Concomitant]
  3. FORTEO [Suspect]
     Indication: OSTEOPOROSIS
     Dosage: UNK, QD
     Route: 058
     Dates: start: 20120123, end: 20120220
  4. CARDIAC THERAPY [Concomitant]

REACTIONS (1)
  - SURGERY [None]
